FAERS Safety Report 4966447-X (Version None)
Quarter: 2006Q2

REPORT INFORMATION
  Report Type: 
  Country: None (occurrence: None)
  Receive Date: 20060403
  Receipt Date: 20060322
  Transmission Date: 20061013
  Serious: Yes (Other)
  Sender: FDA-Public Use
  Company Number: 2006US000491

PATIENT
  Sex: Female

DRUGS (2)
  1. PROTOPIC [Suspect]
     Dosage: TOPICAL
     Route: 061
  2. ELIDEL [Suspect]

REACTIONS (2)
  - LYMPHOMA [None]
  - VULVAL DISORDER [None]
